FAERS Safety Report 20103732 (Version 4)
Quarter: 2022Q1

REPORT INFORMATION
  Report Type: Spontaneous
  Country: US (occurrence: US)
  Receive Date: 20211123
  Receipt Date: 20220128
  Transmission Date: 20220424
  Serious: No
  Sender: FDA-Public Use
  Company Number: US-BAYER-2021A253664

PATIENT
  Age: 18 Year
  Sex: Female

DRUGS (1)
  1. MIRENA [Suspect]
     Active Substance: LEVONORGESTREL
     Dosage: 20?G/DAY
     Route: 015
     Dates: start: 20210915

REACTIONS (3)
  - Device expulsion [Not Recovered/Not Resolved]
  - Suspected counterfeit product [None]
  - Drug diversion [None]

NARRATIVE: CASE EVENT DATE: 20211001
